FAERS Safety Report 12051977 (Version 1)
Quarter: 2016Q1

REPORT INFORMATION
  Report Type: Spontaneous
  Country: US (occurrence: US)
  Receive Date: 20160209
  Receipt Date: 20160209
  Transmission Date: 20160526
  Serious: No
  Sender: FDA-Public Use
  Company Number: US-CELGENEUS-USA-2016020945

PATIENT
  Sex: Female

DRUGS (6)
  1. KETOCONAZOLE. [Concomitant]
     Active Substance: KETOCONAZOLE
     Indication: SEBORRHOEIC DERMATITIS
     Route: 065
     Dates: start: 20150912
  2. OTEZLA [Suspect]
     Active Substance: APREMILAST
     Indication: SEBORRHOEIC DERMATITIS
     Dosage: TITRATION PACK
     Route: 048
     Dates: start: 20160101
  3. DERMA SMOOTHE [Concomitant]
     Indication: SEBORRHOEIC DERMATITIS
     Route: 065
     Dates: start: 20150912
  4. SYNALAR [Concomitant]
     Active Substance: FLUOCINOLONE ACETONIDE
     Indication: SEBORRHOEIC DERMATITIS
     Route: 065
     Dates: start: 20150912
  5. OTEZLA [Suspect]
     Active Substance: APREMILAST
     Route: 048
  6. CLOBEX [Concomitant]
     Active Substance: CLOBETASOL PROPIONATE
     Indication: SEBORRHOEIC DERMATITIS
     Route: 065
     Dates: start: 20150912

REACTIONS (2)
  - Off label use [Unknown]
  - Diarrhoea [Unknown]
